FAERS Safety Report 23936721 (Version 4)
Quarter: 2024Q3

REPORT INFORMATION
  Report Type: Report from Study
  Country: US (occurrence: US)
  Receive Date: 20240604
  Receipt Date: 20240702
  Transmission Date: 20241017
  Serious: Yes (Other)
  Sender: GILEAD
  Company Number: US-GILEAD-2024-0674869

PATIENT
  Sex: Female

DRUGS (6)
  1. AMBRISENTAN [Suspect]
     Active Substance: AMBRISENTAN
     Indication: Pulmonary arterial hypertension
     Dosage: 10 MG, QD
     Route: 065
     Dates: start: 20210105
  2. AMBRISENTAN [Suspect]
     Active Substance: AMBRISENTAN
     Indication: Pulmonary hypertension
     Dosage: 10 MG, QD
     Route: 065
     Dates: start: 20210527
  3. REMODULIN [Concomitant]
     Active Substance: TREPROSTINIL
     Dosage: UNK
  4. ADEMPAS [Concomitant]
     Active Substance: RIOCIGUAT
  5. ADCIRCA [Concomitant]
     Active Substance: TADALAFIL
  6. XARELTO [Concomitant]
     Active Substance: RIVAROXABAN

REACTIONS (10)
  - Ascites [Unknown]
  - Injection site haemorrhage [Unknown]
  - Peripheral swelling [Unknown]
  - Pallor [Unknown]
  - Oedema peripheral [Unknown]
  - Pain in jaw [Unknown]
  - Headache [Unknown]
  - Myalgia [Unknown]
  - Diarrhoea [Unknown]
  - Application site pruritus [Unknown]
